FAERS Safety Report 9701303 (Version 2)
Quarter: 2015Q3

REPORT INFORMATION
  Report Type: Spontaneous
  Country: US (occurrence: US)
  Receive Date: 20131121
  Receipt Date: 20150803
  Transmission Date: 20151125
  Serious: No
  Sender: FDA-Public Use
  Company Number: US-GILEAD-2008-0016300

PATIENT
  Age: 49 Year
  Sex: Male

DRUGS (13)
  1. TOPROL XL [Concomitant]
     Active Substance: METOPROLOL SUCCINATE
  2. ZYBAN [Concomitant]
     Active Substance: BUPROPION HYDROCHLORIDE
  3. ASPIRIN. [Concomitant]
     Active Substance: ASPIRIN
  4. TRAMADOL. [Concomitant]
     Active Substance: TRAMADOL
  5. REVATIO [Concomitant]
     Active Substance: SILDENAFIL CITRATE
  6. COLACE [Concomitant]
     Active Substance: DOCUSATE SODIUM
  7. SENOKOT [Concomitant]
     Active Substance: SENNOSIDES
  8. DEMADEX [Concomitant]
     Active Substance: TORSEMIDE
  9. BACTRIM [Concomitant]
     Active Substance: SULFAMETHOXAZOLE\TRIMETHOPRIM
  10. LETAIRIS [Suspect]
     Active Substance: AMBRISENTAN
     Indication: PULMONARY ARTERIAL HYPERTENSION
     Route: 048
  11. NEUROTIN [Concomitant]
     Active Substance: GABAPENTIN
  12. AMBIEN [Concomitant]
     Active Substance: ZOLPIDEM TARTRATE
  13. PEPCID [Concomitant]
     Active Substance: FAMOTIDINE

REACTIONS (1)
  - Oedema peripheral [Not Recovered/Not Resolved]
